FAERS Safety Report 9108806 (Version 3)
Quarter: 2013Q2

REPORT INFORMATION
  Report Type: Spontaneous
  Country: FR (occurrence: FR)
  Receive Date: 20130222
  Receipt Date: 20130423
  Transmission Date: 20140414
  Serious: Yes (Other)
  Sender: FDA-Public Use
  Company Number: FR-PFIZER INC-2013063911

PATIENT
  Age: 85 Year
  Sex: Male

DRUGS (12)
  1. TRIATEC [Suspect]
     Dosage: 2.5 MG, 1X/DAY
     Route: 048
  2. INSPRA [Suspect]
     Dosage: 50 MG, 1X/DAY
     Route: 048
     Dates: start: 201208, end: 20121115
  3. LASILIX SPECIAL [Suspect]
     Dosage: 500 MG, 1X/DAY
     Route: 048
  4. MODOPAR [Concomitant]
     Dosage: 1 DF, 3X/DAY
     Route: 048
  5. CARDENSIEL [Concomitant]
     Dosage: 1 DF, DAILY
     Route: 048
  6. DUROGESIC [Concomitant]
     Dosage: 1 DF, ONCE IN 3 DAYS
     Route: 062
     Dates: start: 20121018, end: 20121122
  7. CIRCADIN [Concomitant]
     Indication: SLEEP DISORDER
     Dosage: 1 DF, DAILY
     Route: 048
     Dates: start: 20121109, end: 20121115
  8. DIFFU K [Concomitant]
     Dosage: 1 DF, DAILY
     Route: 048
  9. LEXOMIL [Concomitant]
     Dosage: 0.5 DF, DAILY
     Route: 048
     Dates: end: 20121115
  10. NOCTAMID [Concomitant]
     Dosage: 1 DF, DAILY
     Route: 048
  11. LYRICA [Concomitant]
     Dosage: 1 DF, DAILY
     Route: 048
     Dates: end: 20121115
  12. DAFALGAN [Concomitant]
     Dosage: 2 DF, 3X/DAY
     Route: 048

REACTIONS (1)
  - Renal failure acute [Recovered/Resolved]
